FAERS Safety Report 23150956 (Version 4)
Quarter: 2024Q2

REPORT INFORMATION
  Report Type: Spontaneous
  Country: JP (occurrence: JP)
  Receive Date: 20231106
  Receipt Date: 20240531
  Transmission Date: 20240716
  Serious: Yes (Death)
  Sender: FDA-Public Use
  Company Number: JP-Eisai-202309092_LEN-EC_P_1

PATIENT
  Age: 70 Year
  Sex: Female

DRUGS (4)
  1. LENVIMA [Suspect]
     Active Substance: LENVATINIB
     Indication: Endometrial cancer
     Route: 048
     Dates: start: 202307
  2. LENVIMA [Suspect]
     Active Substance: LENVATINIB
     Dosage: EVERY OTHER DAY
     Route: 048
     Dates: start: 20230915, end: 202310
  3. LENVIMA [Suspect]
     Active Substance: LENVATINIB
     Route: 048
     Dates: start: 202310, end: 20231027
  4. KEYTRUDA [Concomitant]
     Active Substance: PEMBROLIZUMAB
     Indication: Endometrial cancer
     Route: 042
     Dates: start: 202307, end: 20231027

REACTIONS (5)
  - Diarrhoea [Fatal]
  - Vomiting [Fatal]
  - Seizure [Fatal]
  - Cardio-respiratory arrest [Fatal]
  - Decreased appetite [Unknown]

NARRATIVE: CASE EVENT DATE: 20230101
